FAERS Safety Report 9246012 (Version 1)
Quarter: 2013Q2

REPORT INFORMATION
  Report Type: Report from Study
  Country: US (occurrence: US)
  Receive Date: 20130422
  Receipt Date: 20130422
  Transmission Date: 20140414
  Serious: No
  Sender: FDA-Public Use
  Company Number: PHEH2013US008608

PATIENT
  Sex: Male

DRUGS (1)
  1. TASIGNA [Suspect]
     Indication: PLASMA CELL MYELOMA
     Dosage: 200 MG, BID
     Route: 048
     Dates: start: 20111214

REACTIONS (1)
  - Labelled drug-food interaction medication error [Unknown]
